FAERS Safety Report 8444149-5 (Version None)
Quarter: 2012Q2

REPORT INFORMATION
  Report Type: 
  Country: None (occurrence: None)
  Receive Date: 20120611
  Receipt Date: 20120522
  Transmission Date: 20120825
  Serious: Yes (Death)
  Sender: FDA-Public Use
  Company Number: 2011-306

PATIENT
  Age: 46 Year
  Sex: Female
  Weight: 58.6 kg

DRUGS (4)
  1. VALPROIC ACID (VALPROICA ACID) [Concomitant]
  2. BENZTROPINE MESYLATE [Concomitant]
  3. FAZACLO ODT [Suspect]
     Indication: SCHIZOAFFECTIVE DISORDER
     Dosage: 600 MG, QD, ORAL
     Route: 048
     Dates: start: 20100517, end: 20110530
  4. LESSINA (ETHINYLESTRADIOL) [Concomitant]

REACTIONS (2)
  - ASPHYXIA [None]
  - CHOKING [None]
